FAERS Safety Report 8576501-1 (Version None)
Quarter: 2012Q3

REPORT INFORMATION
  Report Type: 
  Country: None (occurrence: None)
  Receive Date: 20120807
  Receipt Date: 20120725
  Transmission Date: 20120928
  Serious: No
  Sender: FDA-Public Use
  Company Number: US-JNJFOC-20120715131

PATIENT
  Sex: Female
  Weight: 68.04 kg

DRUGS (2)
  1. FENTANYL-100 [Suspect]
     Indication: PAIN
     Route: 062
     Dates: start: 20110101
  2. LYRICA [Concomitant]
     Indication: FIBROMYALGIA
     Route: 048
     Dates: start: 20080101

REACTIONS (4)
  - APPLICATION SITE PRURITUS [None]
  - PRODUCT QUALITY ISSUE [None]
  - WRONG TECHNIQUE IN DRUG USAGE PROCESS [None]
  - APPLICATION SITE ERYTHEMA [None]
